FAERS Safety Report 13319570 (Version 1)
Quarter: 2017Q1

REPORT INFORMATION
  Report Type: Spontaneous
  Country: None (occurrence: US)
  Receive Date: 20170309
  Receipt Date: 20170309
  Transmission Date: 20170428
  Serious: Yes (Hospitalization)
  Sender: FDA-Public Use
  Company Number: None

PATIENT
  Age: 57 Year
  Sex: Female

DRUGS (11)
  1. TRACLEER [Suspect]
     Active Substance: BOSENTAN
     Indication: PULMONARY ARTERIAL HYPERTENSION
     Route: 048
     Dates: start: 201412
  2. REVATIO [Concomitant]
     Active Substance: SILDENAFIL CITRATE
  3. FAMOTIDINE. [Concomitant]
     Active Substance: FAMOTIDINE
  4. METOLAZONE. [Concomitant]
     Active Substance: METOLAZONE
  5. DULERA [Concomitant]
     Active Substance: FORMOTEROL FUMARATE DIHYDRATE\MOMETASONE FUROATE
  6. VENTOLIN HFA [Concomitant]
     Active Substance: ALBUTEROL SULFATE
  7. K-TAB [Concomitant]
     Active Substance: POTASSIUM CHLORIDE
  8. VELETRI [Concomitant]
     Active Substance: EPOPROSTENOL
  9. LASIX [Concomitant]
     Active Substance: FUROSEMIDE
  10. FLUCONAZOLE. [Concomitant]
     Active Substance: FLUCONAZOLE
  11. GABAPENTIN. [Concomitant]
     Active Substance: GABAPENTIN

REACTIONS (5)
  - Weight increased [None]
  - Dyspnoea [None]
  - Cardiac failure [None]
  - Hypoxia [None]
  - Lung transplant [None]

NARRATIVE: CASE EVENT DATE: 20170220
